FAERS Safety Report 11698616 (Version 1)
Quarter: 2015Q4

REPORT INFORMATION
  Report Type: Spontaneous
  Country: US (occurrence: US)
  Receive Date: 20151104
  Receipt Date: 20151104
  Transmission Date: 20160304
  Serious: No
  Sender: FDA-Public Use
  Company Number: US-ELI_LILLY_AND_COMPANY-US201101001496

PATIENT
  Age: 66 Year
  Sex: Female

DRUGS (1)
  1. FORTEO [Suspect]
     Active Substance: TERIPARATIDE
     Indication: OSTEOPOROSIS
     Dosage: 20 UG, DAILY (1/D)

REACTIONS (6)
  - Sjogren^s syndrome [Unknown]
  - Dry eye [Unknown]
  - Tooth erosion [Unknown]
  - Hair texture abnormal [Unknown]
  - Dry mouth [Unknown]
  - Tooth fracture [Unknown]

NARRATIVE: CASE EVENT DATE: 201001
